FAERS Safety Report 15012959 (Version 2)
Quarter: 2018Q3

REPORT INFORMATION
  Report Type: Spontaneous
  Country: US (occurrence: US)
  Receive Date: 20180614
  Receipt Date: 20180924
  Transmission Date: 20181010
  Serious: Yes (Hospitalization, Other)
  Sender: FDA-Public Use
  Company Number: US-OTSUKA-2018_015357

PATIENT
  Sex: Female

DRUGS (44)
  1. ABILIFY [Suspect]
     Active Substance: ARIPIPRAZOLE
     Indication: BIPOLAR DISORDER
     Dosage: 30 MG, QD
     Route: 065
     Dates: start: 201012
  2. ABILIFY [Suspect]
     Active Substance: ARIPIPRAZOLE
     Dosage: 40 MG, QD
     Route: 065
     Dates: end: 201510
  3. ATIVAN [Concomitant]
     Active Substance: LORAZEPAM
     Dosage: 1 MG, QD
     Route: 048
     Dates: start: 20160323, end: 20160621
  4. LAMOTRIGIN [Concomitant]
     Active Substance: LAMOTRIGINE
     Dosage: 100 MG, QD
     Route: 048
     Dates: start: 20150603, end: 201509
  5. PRISTIQ EXTENDED?RELEASE [Concomitant]
     Active Substance: DESVENLAFAXINE SUCCINATE
     Indication: PRODUCT USED FOR UNKNOWN INDICATION
     Dosage: 50 MG, UNK
     Route: 048
     Dates: start: 20151006, end: 20151006
  6. TEGRETOL [Concomitant]
     Active Substance: CARBAMAZEPINE
     Indication: PRODUCT USED FOR UNKNOWN INDICATION
     Dosage: UNK
     Route: 065
  7. ABILIFY [Suspect]
     Active Substance: ARIPIPRAZOLE
     Dosage: 40 MG, QD (4 TABS OF 10 MG DAILY)
     Route: 065
     Dates: start: 201502
  8. AMBIEN [Concomitant]
     Active Substance: ZOLPIDEM TARTRATE
     Indication: BIPOLAR DISORDER
     Dosage: 10 MG, EVERY NIGHT AT BED TIME
     Route: 048
     Dates: start: 20150106, end: 20150224
  9. BRINTELLIX [Concomitant]
     Active Substance: VORTIOXETINE HYDROBROMIDE
     Indication: PRODUCT USED FOR UNKNOWN INDICATION
     Dosage: 10 MG, QD
     Route: 048
     Dates: start: 20141022, end: 20150106
  10. LAMOTRIGIN [Concomitant]
     Active Substance: LAMOTRIGINE
     Dosage: 200 MG, QD
     Route: 048
     Dates: start: 20151006, end: 20160104
  11. TRAZODONE [Concomitant]
     Active Substance: TRAZODONE HYDROCHLORIDE
     Dosage: 100 MG, QD (BEDTIME)
     Route: 048
     Dates: start: 20160323, end: 20160323
  12. INVEGA [Concomitant]
     Active Substance: PALIPERIDONE
     Dosage: 9 MG, QD
     Route: 048
     Dates: start: 20151006, end: 20160104
  13. ABILIFY MAINTENA [Suspect]
     Active Substance: ARIPIPRAZOLE
     Indication: PRODUCT USED FOR UNKNOWN INDICATION
     Dosage: 400 MG, EVERY 4 WEEKS
     Route: 030
  14. ATIVAN [Concomitant]
     Active Substance: LORAZEPAM
     Indication: ANXIETY
     Dosage: 1 MG, QID (AS REQUIRED)
     Route: 048
     Dates: start: 20150106, end: 20150406
  15. ATIVAN [Concomitant]
     Active Substance: LORAZEPAM
     Dosage: 1 MG, QD
     Route: 048
     Dates: start: 20151103, end: 20160102
  16. LAMOTRIGIN [Concomitant]
     Active Substance: LAMOTRIGINE
     Dosage: 200 MG, QD
     Route: 048
     Dates: start: 20160801, end: 20161030
  17. TRAZODONE [Concomitant]
     Active Substance: TRAZODONE HYDROCHLORIDE
     Indication: PRODUCT USED FOR UNKNOWN INDICATION
     Dosage: 100 MG, QD (AT BED TIME)
     Route: 048
     Dates: start: 20151006, end: 20160104
  18. ASPIRIN. [Concomitant]
     Active Substance: ASPIRIN
     Indication: PRODUCT USED FOR UNKNOWN INDICATION
     Dosage: 81 MG, UNK
     Route: 065
     Dates: start: 20151006, end: 20160801
  19. ARTANE [Concomitant]
     Active Substance: TRIHEXYPHENIDYL HYDROCHLORIDE
     Indication: PRODUCT USED FOR UNKNOWN INDICATION
     Dosage: UNK
     Route: 065
  20. ABILIFY [Suspect]
     Active Substance: ARIPIPRAZOLE
     Dosage: 30 MG, QD
     Route: 048
     Dates: start: 20150204, end: 201502
  21. SAPHRIS [Concomitant]
     Active Substance: ASENAPINE MALEATE
     Indication: PRODUCT USED FOR UNKNOWN INDICATION
     Dosage: 5 MG, QD (UNDER THE TONGUE EVERY NIGHT)
     Route: 060
     Dates: start: 20150106, end: 20150108
  22. LAMICTAL [Concomitant]
     Active Substance: LAMOTRIGINE
     Dosage: 25 MG, QD (1 TABLET DAILY FOR FOR 14 DAYS AND 2 TABLET DAILY FOR 14 DAYS)
     Route: 065
     Dates: start: 20150109, end: 20150224
  23. ATENOLOL. [Concomitant]
     Active Substance: ATENOLOL
     Dosage: 25 MG, UNK
     Route: 065
     Dates: start: 20160801
  24. HYDROCHLOROTHIAZID [Concomitant]
     Active Substance: HYDROCHLOROTHIAZIDE
     Indication: PRODUCT USED FOR UNKNOWN INDICATION
     Dosage: 12.5 MG, UNK
     Route: 065
     Dates: start: 20151103, end: 20160801
  25. VALIUM [Concomitant]
     Active Substance: DIAZEPAM
     Dosage: 5 MG, QD
     Route: 048
     Dates: start: 20170928, end: 20171028
  26. STELAZINE [Concomitant]
     Active Substance: TRIFLUOPERAZINE HYDROCHLORIDE
     Indication: PRODUCT USED FOR UNKNOWN INDICATION
     Dosage: UNK
     Route: 065
  27. ABILIFY [Suspect]
     Active Substance: ARIPIPRAZOLE
     Dosage: 40 MG, QD (4 TABS OF 10 MG DAILY)
     Route: 065
     Dates: start: 20150224
  28. LAMOTRIGIN [Concomitant]
     Active Substance: LAMOTRIGINE
     Indication: PRODUCT USED FOR UNKNOWN INDICATION
     Dosage: 100 MG, QD
     Route: 048
     Dates: start: 20140423, end: 20150106
  29. LAMOTRIGIN [Concomitant]
     Active Substance: LAMOTRIGINE
     Dosage: 100 MG, QD
     Route: 048
     Dates: start: 20150224, end: 20150525
  30. LAMOTRIGIN [Concomitant]
     Active Substance: LAMOTRIGINE
     Dosage: 150 MG, QD
     Route: 048
     Dates: start: 20150908
  31. LAMOTRIGIN [Concomitant]
     Active Substance: LAMOTRIGINE
     Dosage: 200 MG, QD
     Route: 048
     Dates: start: 20170717, end: 20171114
  32. LAMICTAL [Concomitant]
     Active Substance: LAMOTRIGINE
     Indication: PRODUCT USED FOR UNKNOWN INDICATION
     Dosage: 100 MG, UNK
     Route: 065
  33. INVEGA [Concomitant]
     Active Substance: PALIPERIDONE
     Indication: PRODUCT USED FOR UNKNOWN INDICATION
     Dosage: 6 MG, QD (AT BEDTIME)
     Route: 048
     Dates: start: 20150922
  34. HYDROXYZINE PAMOATE. [Concomitant]
     Active Substance: HYDROXYZINE PAMOATE
     Indication: PRODUCT USED FOR UNKNOWN INDICATION
     Dosage: 50 MG, UNK
     Route: 065
     Dates: start: 20150918, end: 201510
  35. LAMOTRIGIN [Concomitant]
     Active Substance: LAMOTRIGINE
     Dosage: 200 MG, QD
     Route: 048
     Dates: start: 20160323, end: 20160621
  36. LAMOTRIGIN [Concomitant]
     Active Substance: LAMOTRIGINE
     Dosage: 25 MG, QD (FOR TWO WEEKS THEN 2 TAB DAILY)
     Route: 065
     Dates: start: 20161229, end: 20170119
  37. HYDROXYZINE PAMOATE. [Concomitant]
     Active Substance: HYDROXYZINE PAMOATE
     Dosage: 50 MG, QID
     Route: 048
     Dates: start: 20151006
  38. LAMOTRIGIN [Concomitant]
     Active Substance: LAMOTRIGINE
     Dosage: 200 MG, QD
     Route: 048
     Dates: start: 20160308, end: 201603
  39. HYDROXYZINE PAMOATE. [Concomitant]
     Active Substance: HYDROXYZINE PAMOATE
     Dosage: 25 MG, QD
     Route: 048
     Dates: start: 20160801, end: 20161030
  40. ABILIFY MAINTENA [Suspect]
     Active Substance: ARIPIPRAZOLE
     Dosage: 400 MG, EVERY 4 WEEKS
     Route: 030
     Dates: start: 20150810, end: 20151201
  41. HYDROXYZINE PAMOATE. [Concomitant]
     Active Substance: HYDROXYZINE PAMOATE
     Dosage: 50 MG, QID
     Route: 048
     Dates: end: 20151103
  42. PROTONIX [Concomitant]
     Active Substance: PANTOPRAZOLE SODIUM
     Indication: PRODUCT USED FOR UNKNOWN INDICATION
     Dosage: 40 MG, UNK
     Route: 065
     Dates: start: 20151006, end: 20151103
  43. ATENOLOL. [Concomitant]
     Active Substance: ATENOLOL
     Indication: PRODUCT USED FOR UNKNOWN INDICATION
     Dosage: 25 MG, UNK
     Route: 065
     Dates: start: 20151006, end: 20151103
  44. VALIUM [Concomitant]
     Active Substance: DIAZEPAM
     Indication: PRODUCT USED FOR UNKNOWN INDICATION
     Dosage: 5 MG, QD
     Route: 048
     Dates: start: 20161229, end: 20170329

REACTIONS (15)
  - Depression [Recovering/Resolving]
  - Sleep disorder [Unknown]
  - Weight increased [Unknown]
  - Suicide attempt [Recovered/Resolved]
  - Economic problem [Unknown]
  - Eating disorder [Recovered/Resolved]
  - Suicidal ideation [Recovered/Resolved]
  - Anger [Unknown]
  - Compulsive shopping [Recovered/Resolved]
  - Irritability [Unknown]
  - Gambling disorder [Recovered/Resolved]
  - Mental disorder [Unknown]
  - Mania [Unknown]
  - Drug ineffective [Unknown]
  - Bankruptcy [Unknown]
